FAERS Safety Report 25159541 (Version 1)
Quarter: 2025Q2

REPORT INFORMATION
  Report Type: Spontaneous
  Country: US (occurrence: US)
  Receive Date: 20250404
  Receipt Date: 20250404
  Transmission Date: 20250717
  Serious: Yes (Other)
  Sender: HIKMA
  Company Number: US-HIKMA PHARMACEUTICALS USA INC.-US-H14001-25-02751

PATIENT

DRUGS (1)
  1. MITOMYCIN [Suspect]
     Active Substance: MITOMYCIN
     Indication: Glaucoma surgery
     Route: 031

REACTIONS (1)
  - Retinal toxicity [Unknown]
